FAERS Safety Report 7340078-9 (Version None)
Quarter: 2011Q1

REPORT INFORMATION
  Report Type: 
  Country: None (occurrence: None)
  Receive Date: 20110309
  Receipt Date: 20110302
  Transmission Date: 20110831
  Serious: Yes (Death, Other)
  Sender: FDA-Public Use
  Company Number: PHHY2011JP17454

PATIENT
  Age: 81 Year
  Sex: Male

DRUGS (2)
  1. TASIGNA [Suspect]
     Dosage: UNK
     Route: 048
     Dates: end: 20110221
  2. TASIGNA [Suspect]
     Indication: CHRONIC MYELOID LEUKAEMIA TRANSFORMATION
     Dosage: 400 MG DAILY
     Route: 048
     Dates: start: 20110129

REACTIONS (5)
  - LYMPHOMA [None]
  - CHRONIC MYELOID LEUKAEMIA [None]
  - DEPRESSED LEVEL OF CONSCIOUSNESS [None]
  - CONCOMITANT DISEASE PROGRESSION [None]
  - DYSPHAGIA [None]
